FAERS Safety Report 6137106-5 (Version None)
Quarter: 2009Q1

REPORT INFORMATION
  Report Type: 
  Country: None (occurrence: None)
  Receive Date: 20090330
  Receipt Date: 20090316
  Transmission Date: 20090719
  Serious: Yes (Other)
  Sender: FDA-Public Use
  Company Number: TZ-ROCHE-623902

PATIENT

DRUGS (1)
  1. PYRIMETHAMINE/SULFADOXINE [Suspect]
     Indication: MALARIA
     Dosage: 0.5 TABLET FOR WEIGHT 4.5-10 KG;1 TABLET FOR 11-20 KG;1.5 TABLET FOR 21-30KG
     Route: 065

REACTIONS (2)
  - DRUG INEFFECTIVE [None]
  - MALARIA [None]
